FAERS Safety Report 5797900-7 (Version None)
Quarter: 2008Q2

REPORT INFORMATION
  Report Type: 
  Country: None (occurrence: None)
  Receive Date: 20080630
  Receipt Date: 20080616
  Transmission Date: 20081010
  Serious: Yes (Hospitalization)
  Sender: FDA-Public Use
  Company Number: BR-1166418

PATIENT
  Age: 23 Year
  Sex: Female

DRUGS (1)
  1. TRAVATAN [Suspect]
     Indication: GLAUCOMA
     Dosage: 1 GTT OU QD OPHTHALMIC
     Route: 047
     Dates: start: 20080524, end: 20080611

REACTIONS (1)
  - PANCREATITIS ACUTE [None]
